FAERS Safety Report 5135884-5 (Version None)
Quarter: 2006Q4

REPORT INFORMATION
  Report Type: 
  Country: None (occurrence: None)
  Receive Date: 20061020
  Receipt Date: 20061006
  Transmission Date: 20070319
  Serious: Yes (Hospitalization)
  Sender: FDA-Public Use
  Company Number: KADN20060038

PATIENT
  Age: 52 Year
  Sex: Female
  Weight: 90.7194 kg

DRUGS (2)
  1. KADIAN [Suspect]
     Indication: BACK PAIN
     Dosage: 10 CAPS ONCE PO
     Route: 048
     Dates: start: 20060913, end: 20060913
  2. CELEBREX [Concomitant]

REACTIONS (4)
  - DEPRESSED LEVEL OF CONSCIOUSNESS [None]
  - INADEQUATE ANALGESIA [None]
  - OVERDOSE [None]
  - TREATMENT NONCOMPLIANCE [None]
